FAERS Safety Report 6715444-2 (Version None)
Quarter: 2010Q2

REPORT INFORMATION
  Report Type: 
  Country: None (occurrence: None)
  Receive Date: 20100507
  Receipt Date: 20100507
  Transmission Date: 20101027
  Serious: Yes (Other)
  Sender: FDA-Public Use
  Company Number: None

PATIENT
  Age: 32 Month
  Sex: Male
  Weight: 15.4223 kg

DRUGS (3)
  1. INFANT DROPS TYLENOL 50 MG PER 1.25 ML. MCNEIL CONSUMER HEALTH CARE [Suspect]
     Indication: EAR INFECTION
     Dates: start: 20100428, end: 20100501
  2. INFANT DROPS TYLENOL 50 MG PER 1.25 ML. MCNEIL CONSUMER HEALTH CARE [Suspect]
     Indication: PYREXIA
     Dates: start: 20100428, end: 20100501
  3. INFANT DROPS TYLENOL 50 MG PER 1.25 ML. [Suspect]
     Dates: start: 20100428, end: 20100501

REACTIONS (1)
  - DIARRHOEA [None]
